FAERS Safety Report 13176723 (Version 4)
Quarter: 2017Q2

REPORT INFORMATION
  Report Type: Spontaneous
  Country: US (occurrence: US)
  Receive Date: 20170201
  Receipt Date: 20170518
  Transmission Date: 20170830
  Serious: Yes (Other)
  Sender: FDA-Public Use
  Company Number: US-CELGENEUS-USA-2017018191

PATIENT
  Age: 62 Year
  Sex: Female
  Weight: 93.98 kg

DRUGS (2)
  1. OTEZLA [Suspect]
     Active Substance: APREMILAST
     Dosage: 60 MILLIGRAM
     Route: 048
     Dates: start: 20151001
  2. OTEZLA [Suspect]
     Active Substance: APREMILAST
     Indication: PSORIASIS
     Route: 048
     Dates: start: 201509

REACTIONS (3)
  - Viral upper respiratory tract infection [Unknown]
  - Ear infection [Unknown]
  - Headache [Unknown]

NARRATIVE: CASE EVENT DATE: 20170123
